FAERS Safety Report 17812326 (Version 1)
Quarter: 2020Q2

REPORT INFORMATION
  Report Type: Spontaneous
  Country: US (occurrence: US)
  Receive Date: 20200521
  Receipt Date: 20200521
  Transmission Date: 20200714
  Serious: Yes (Other)
  Sender: FDA-Public Use
  Company Number: US-SPROUT PHARMACEUTICALS, INC.-2020SP000043

PATIENT
  Age: 59 Year
  Sex: Female
  Weight: 53.57 kg

DRUGS (2)
  1. PRAVASTATIN. [Concomitant]
     Active Substance: PRAVASTATIN
     Indication: BLOOD CHOLESTEROL INCREASED
     Dates: start: 2019
  2. ADDYI [Suspect]
     Active Substance: FLIBANSERIN
     Indication: LOSS OF LIBIDO
     Route: 048
     Dates: start: 202003, end: 20200510

REACTIONS (9)
  - Nausea [Unknown]
  - Product use in unapproved indication [Recovered/Resolved]
  - Palpitations [Not Recovered/Not Resolved]
  - Chest pain [Not Recovered/Not Resolved]
  - Insomnia [Recovering/Resolving]
  - Drug ineffective for unapproved indication [Not Recovered/Not Resolved]
  - Dizziness [Unknown]
  - Middle insomnia [Recovering/Resolving]
  - Hypotension [Unknown]

NARRATIVE: CASE EVENT DATE: 2020
